FAERS Safety Report 4691730-5 (Version None)
Quarter: 2005Q2

REPORT INFORMATION
  Report Type: 
  Country: None (occurrence: None)
  Receive Date: 20050616
  Receipt Date: 20050526
  Transmission Date: 20051028
  Serious: Yes (Hospitalization)
  Sender: FDA-Public Use
  Company Number: 200514571US

PATIENT
  Sex: Male

DRUGS (1)
  1. KETEK [Suspect]
     Indication: BRONCHITIS
     Dosage: DOSE: UNK
     Dates: start: 20041202

REACTIONS (2)
  - MYASTHENIA GRAVIS [None]
  - PULMONARY FUNCTION TEST DECREASED [None]
